FAERS Safety Report 6084221-0 (Version None)
Quarter: 2009Q1

REPORT INFORMATION
  Report Type: 
  Country: None (occurrence: None)
  Receive Date: 20090219
  Receipt Date: 20090211
  Transmission Date: 20090719
  Serious: Yes (Life-Threatening)
  Sender: FDA-Public Use
  Company Number: FR-ROCHE-614324

PATIENT
  Sex: Male

DRUGS (5)
  1. VALIUM [Suspect]
     Indication: DRUG USE FOR UNKNOWN INDICATION
     Route: 065
     Dates: end: 20081016
  2. METHADONE HCL [Suspect]
     Indication: DRUG USE FOR UNKNOWN INDICATION
     Route: 048
     Dates: end: 20081016
  3. DEROXAT [Concomitant]
  4. TIAPRIDAL [Concomitant]
  5. ZYPREXA [Concomitant]
     Dosage: DRUG NAME: ZYPREXA 10 (ONE INTAKE IN THE EVENING)

REACTIONS (1)
  - POISONING [None]
